FAERS Safety Report 4746243-9 (Version None)
Quarter: 2005Q3

REPORT INFORMATION
  Report Type: 
  Country: None (occurrence: None)
  Receive Date: 20050816
  Receipt Date: 20050801
  Transmission Date: 20060218
  Serious: Yes (Other)
  Sender: FDA-Public Use
  Company Number: US_0502113221

PATIENT
  Age: 32 Year
  Sex: Female
  Weight: 100 kg

DRUGS (13)
  1. ZYPREXA [Suspect]
     Indication: ANXIETY
     Dosage: 15 MG/ 2 AT BEDTIME
     Dates: start: 19991130, end: 20040901
  2. PROZAC [Concomitant]
  3. REMERON [Concomitant]
  4. PAXIL [Concomitant]
  5. ZOLOFT [Concomitant]
  6. DOXEPIN HCL [Concomitant]
  7. XANAX [Concomitant]
  8. BENADRYL [Concomitant]
  9. ELAVIL [Concomitant]
  10. VALIUM [Concomitant]
  11. ACETAMINOPHEN [Concomitant]
  12. IBUPROFEN [Concomitant]
  13. ROBAXIN [Concomitant]

REACTIONS (21)
  - ABDOMINAL PAIN UPPER [None]
  - ABDOMINAL TENDERNESS [None]
  - ARTHRALGIA [None]
  - ASTHENIA [None]
  - BACK PAIN [None]
  - BRONCHITIS [None]
  - DIABETES MELLITUS NON-INSULIN-DEPENDENT [None]
  - DIZZINESS [None]
  - FATIGUE [None]
  - HAEMATEMESIS [None]
  - HYPERGLYCAEMIA [None]
  - HYPERTENSION [None]
  - INSOMNIA [None]
  - OEDEMA PERIPHERAL [None]
  - PAIN [None]
  - PRESCRIBED OVERDOSE [None]
  - PRODUCTIVE COUGH [None]
  - SPUTUM DISCOLOURED [None]
  - VERTIGO [None]
  - VOMITING [None]
  - WEIGHT INCREASED [None]
